FAERS Safety Report 19923791 (Version 1)
Quarter: 2021Q4

REPORT INFORMATION
  Report Type: Spontaneous
  Country: US (occurrence: US)
  Receive Date: 20211005
  Receipt Date: 20211005
  Transmission Date: 20220303
  Serious: No
  Sender: FDA-Public Use
  Company Number: None

PATIENT
  Age: 71 Year
  Sex: Male

DRUGS (1)
  1. DROXIDOPA [Suspect]
     Active Substance: DROXIDOPA
     Route: 048
     Dates: start: 20210804

REACTIONS (3)
  - Blood pressure decreased [None]
  - Dysstasia [None]
  - Therapy cessation [None]

NARRATIVE: CASE EVENT DATE: 20210805
